FAERS Safety Report 7097175-5 (Version None)
Quarter: 2010Q4

REPORT INFORMATION
  Report Type: 
  Country: None (occurrence: None)
  Receive Date: 20101111
  Receipt Date: 20100222
  Transmission Date: 20110411
  Serious: No
  Sender: FDA-Public Use
  Company Number: US-KINGPHARMUSA00001-K201000208

PATIENT
  Age: 54 Year
  Sex: Male

DRUGS (3)
  1. EMBEDA [Suspect]
     Indication: BACK PAIN
     Dosage: UNK,  TWICE
  2. EMBEDA [Suspect]
     Indication: LUMBAR RADICULOPATHY
  3. EMBEDA [Suspect]
     Indication: POST LAMINECTOMY SYNDROME

REACTIONS (1)
  - NAUSEA [None]
